FAERS Safety Report 22379251 (Version 1)
Quarter: 2023Q2

REPORT INFORMATION
  Report Type: Report from Study
  Country: US (occurrence: US)
  Receive Date: 20230529
  Receipt Date: 20230529
  Transmission Date: 20230722
  Serious: Yes (Other)
  Sender: FDA-Public Use
  Company Number: US-PFIZER INC-202300198750

PATIENT

DRUGS (2)
  1. SUNITINIB MALATE [Suspect]
     Active Substance: SUNITINIB MALATE
     Indication: Metastatic renal cell carcinoma
     Dosage: 50 MG, CYCLIC (4 WEEKS, FOLLOWED BY 2 WEEKS REST)
     Route: 048
  2. TEMSIROLIMUS [Concomitant]
     Active Substance: TEMSIROLIMUS
     Indication: Metastatic renal cell carcinoma
     Dosage: 25 MG, CYCLIC (WEEKLY FOR 4 WEEKS  FOLLOWED BY 2 WEEKS REST (12 WEEKS TOTAL PER CYCLE))
     Route: 042

REACTIONS (1)
  - Atrial fibrillation [Recovered/Resolved]
